FAERS Safety Report 6657225-4 (Version None)
Quarter: 2010Q1

REPORT INFORMATION
  Report Type: 
  Country: None (occurrence: None)
  Receive Date: 20100317
  Receipt Date: 20100201
  Transmission Date: 20100710
  Serious: No
  Sender: FDA-Public Use
  Company Number: DSA_41944_2009

PATIENT
  Sex: Female

DRUGS (6)
  1. XENAZINE [Suspect]
     Indication: HUNTINGTON'S CHOREA
     Dosage: 12.5 MG TID ORAL, DF ORAL, 12.5 MG BID ORAL
     Route: 048
     Dates: start: 20090601, end: 20090101
  2. XENAZINE [Suspect]
     Indication: HUNTINGTON'S CHOREA
     Dosage: 12.5 MG TID ORAL, DF ORAL, 12.5 MG BID ORAL
     Route: 048
     Dates: start: 20090630
  3. SERTRALINE HCL [Concomitant]
  4. IMODIUM [Concomitant]
  5. FAMOTIDINE [Concomitant]
  6. AMANTADINE HCL [Concomitant]

REACTIONS (3)
  - ABDOMINAL DISTENSION [None]
  - FLATULENCE [None]
  - SOMNOLENCE [None]
